FAERS Safety Report 16347138 (Version 1)
Quarter: 2019Q2

REPORT INFORMATION
  Report Type: Spontaneous
  Country: MX (occurrence: MX)
  Receive Date: 20190523
  Receipt Date: 20190523
  Transmission Date: 20190711
  Serious: Yes (Life-Threatening, Hospitalization, Other)
  Sender: FDA-Public Use
  Company Number: MX-TORRENT-00000147

PATIENT
  Age: 11 Year
  Sex: Male

DRUGS (1)
  1. LAMOTRIGINE. [Suspect]
     Active Substance: LAMOTRIGINE
     Indication: EPILEPSY
     Route: 048
     Dates: start: 20150730, end: 20150824

REACTIONS (2)
  - Stevens-Johnson syndrome [Recovering/Resolving]
  - Pseudomonas infection [Recovering/Resolving]

NARRATIVE: CASE EVENT DATE: 20150804
